FAERS Safety Report 21206342 (Version 1)
Quarter: 2022Q3

REPORT INFORMATION
  Report Type: Report from Study
  Country: US (occurrence: US)
  Receive Date: 20220812
  Receipt Date: 20220812
  Transmission Date: 20221027
  Serious: Yes (Hospitalization)
  Sender: FDA-Public Use
  Company Number: US-PFIZER INC-PV202200039661

PATIENT
  Age: 35 Year
  Sex: Male
  Weight: 129.5 kg

DRUGS (32)
  1. DOXORUBICIN HYDROCHLORIDE [Suspect]
     Active Substance: DOXORUBICIN HYDROCHLORIDE
     Indication: B-cell type acute leukaemia
     Dosage: 10 MG/M2, DAYS 1-4 EVERY 28 DAYS
     Route: 042
     Dates: start: 20220730, end: 20220803
  2. VINCRISTINE SULFATE [Suspect]
     Active Substance: VINCRISTINE SULFATE
     Indication: B-cell type acute leukaemia
     Dosage: 0.4 MG/M2, DAYS 1-4 EVERY 28 DAYS
     Route: 042
     Dates: start: 20220730, end: 20220803
  3. INOTUZUMAB OZOGAMICIN [Suspect]
     Active Substance: INOTUZUMAB OZOGAMICIN
     Indication: B-cell type acute leukaemia
     Dosage: 0.6 MG/M2 ON DAY 8
     Dates: start: 20220805
  4. INOTUZUMAB OZOGAMICIN [Suspect]
     Active Substance: INOTUZUMAB OZOGAMICIN
     Dosage: 0.3 MG/M2 ON DAY 15
  5. ETOPOSIDE [Suspect]
     Active Substance: ETOPOSIDE
     Indication: B-cell type acute leukaemia
     Dosage: 50 MG/M2, DAYS 1-4  EVERY 28 DAYS
     Route: 042
     Dates: start: 20220730, end: 20220803
  6. CYCLOPHOSPHAMIDE [Suspect]
     Active Substance: CYCLOPHOSPHAMIDE
     Indication: B-cell type acute leukaemia
     Dosage: 750 MG/M2, DAY 5  EVERY 28 DAYS
     Route: 042
     Dates: start: 20220804, end: 20220804
  7. ZOVIRAX [Concomitant]
     Active Substance: ACYCLOVIR
     Dosage: 800 MG, 2 TIMES DAILY
     Route: 048
  8. ALLOPURINOL [Concomitant]
     Active Substance: ALLOPURINOL
     Dosage: 1 TABLET, 2 TIMES A DAY
     Route: 048
  9. ALUMINIUM/MAGNESIUM HYDROXIDE/SIMETICONE [Concomitant]
     Dosage: 200-200-20 MG/5ML SUSPENSION 20 ML, 4 TIMES DAILY PRN
     Route: 048
  10. AMLODIPINE [Concomitant]
     Active Substance: AMLODIPINE BESYLATE
     Dosage: 1 TABLET DAILY
     Route: 048
  11. FAMOTIDINE [Concomitant]
     Active Substance: FAMOTIDINE
     Dosage: 1 TABLET EVERY EVENING
     Route: 048
  12. DIFLUCAN [Concomitant]
     Active Substance: FLUCONAZOLE
     Dosage: 200 MG, DAILY
     Route: 048
  13. INSULIN LISPRO [Concomitant]
     Active Substance: INSULIN LISPRO
     Dosage: 15-27 UNITS 3 TIMES DAILY BEFORE MEALS PER SLIDING SCALE
  14. LANTUS SOLOSTAR [Concomitant]
     Active Substance: INSULIN GLARGINE
     Dosage: EVERY MORNING
     Route: 058
  15. LEVAQUIN [Concomitant]
     Active Substance: LEVOFLOXACIN
     Dosage: TAKE DAILY WHEN ANC LESS THAN 500 PER MD INSTRUCTION
     Route: 048
  16. METFORMIN HYDROCHLORIDE [Concomitant]
     Active Substance: METFORMIN HYDROCHLORIDE
     Dosage: 1 TABLET (500 MG) WITH LUNCH AND 2 TABLETS (1000 MG) WITH DINNER
     Route: 048
  17. METOCLOPRAMIDE [Concomitant]
     Active Substance: METOCLOPRAMIDE
     Dosage: 1 TABLET EVERY 12 HOURS
     Route: 048
  18. NARCAN [Concomitant]
     Active Substance: NALOXONE HYDROCHLORIDE
     Dosage: USE 1 SPRAY IN ONE NOSTRIL FOR SUSPECTED OPIOID OVERDOSE
     Route: 045
  19. OLANZAPINE [Concomitant]
     Active Substance: OLANZAPINE
     Indication: Nausea
     Dosage: 1 TABLET AT BEDTIME AS NEEDED FOR NAUSEA OR HICCUPS FOR UP TO 15 DAYS.
     Route: 048
  20. OLANZAPINE [Concomitant]
     Active Substance: OLANZAPINE
     Indication: Hiccups
  21. ONDANSETRON [Concomitant]
     Active Substance: ONDANSETRON
     Indication: Nausea
     Dosage: 8 MG, AS NEEDED
  22. ONDANSETRON [Concomitant]
     Active Substance: ONDANSETRON
     Indication: Vomiting
  23. PANTOPRAZOLE [Concomitant]
     Active Substance: PANTOPRAZOLE
     Dosage: 1 TABLET ,1 TIME A DAY ON AN EMPTY STOMACH
     Route: 048
  24. COMPAZINE [Concomitant]
     Active Substance: PROCHLORPERAZINE MALEATE
     Dosage: EVERY 6 HOURS PRN
     Route: 048
  25. SENNOSIDES A AND B [Concomitant]
     Active Substance: SENNOSIDES A AND B
     Indication: Constipation
     Dosage: TAKE 1-2 TABLETS AT BEDTIME AS NEEDED FOR CONSTIPATION
  26. SULFAMETHOXAZOLE\TRIMETHOPRIM [Concomitant]
     Active Substance: SULFAMETHOXAZOLE\TRIMETHOPRIM
     Dosage: 1 TABLET, ORAL, 2 TIMES DAILY ON MON AND TUES
     Route: 048
  27. SUMATRIPTAN [Concomitant]
     Active Substance: SUMATRIPTAN
     Indication: Migraine
     Dosage: TAKE 1 TABLET BY MOUTH ONE TIME AS NEEDED. MAY REPEAT DOSE ONCE IN 2 HOURS IF NO RELIEF.
     Route: 048
  28. TAMSULOSIN [Concomitant]
     Active Substance: TAMSULOSIN
     Dosage: TAKE 1 CAPSULE BY MOUTH 1 TIME A DAY
     Route: 048
  29. TRAZODONE [Concomitant]
     Active Substance: TRAZODONE HYDROCHLORIDE
     Dosage: TAKE 1 TABLET BY MOUTH 1 TIME A DAY AT BEDTIME
     Route: 048
  30. URSODIOL [Concomitant]
     Active Substance: URSODIOL
     Dosage: 6 MG/KG, 2 TIMES DAILY, TAKE WITH FOOD
     Route: 048
  31. NOVOLIN N [Concomitant]
     Active Substance: INSULIN HUMAN
     Dosage: ON DAYS GETTING DEXAMETHASONE
     Route: 058
  32. CEROVITE SENIOR [Concomitant]
     Dosage: 1 DF, DAILY
     Route: 048

REACTIONS (1)
  - Pancreatitis acute [Not Recovered/Not Resolved]

NARRATIVE: CASE EVENT DATE: 20220807
